FAERS Safety Report 9053895 (Version 1)
Quarter: 2013Q1

REPORT INFORMATION
  Report Type: Spontaneous
  Country: US (occurrence: None)
  Receive Date: 20130201
  Receipt Date: 20130201
  Transmission Date: 20140127
  Serious: Yes (Other)
  Sender: FDA-Public Use
  Company Number: None

PATIENT
  Age: 14 Year
  Sex: Male
  Weight: 72.58 kg

DRUGS (1)
  1. CLARAVIS [Suspect]
     Indication: ACNE
     Route: 048
     Dates: start: 201202, end: 201203

REACTIONS (14)
  - Pain [None]
  - Chest pain [None]
  - Pain in extremity [None]
  - Neck pain [None]
  - Pain in extremity [None]
  - Red blood cell sedimentation rate abnormal [None]
  - Gait disturbance [None]
  - Hyperventilation [None]
  - Activities of daily living impaired [None]
  - Fear [None]
  - Staphylococcal infection [None]
  - Impaired healing [None]
  - Insomnia [None]
  - Screaming [None]
